FAERS Safety Report 4265714-5 (Version None)
Quarter: 2004Q1

REPORT INFORMATION
  Report Type: 
  Country: None (occurrence: None)
  Receive Date: 20040106
  Receipt Date: 20031224
  Transmission Date: 20041129
  Serious: Yes (Other)
  Sender: FDA-Public Use
  Company Number: NSADSS2003014914

PATIENT
  Age: 67 Year
  Sex: Male

DRUGS (2)
  1. REMICADE [Suspect]
     Indication: RHEUMATOID ARTHRITIS
     Dosage: 3 MG/KG, 13 IN  ,  INTRAVENOUS DRIP
     Route: 041
     Dates: start: 20010605, end: 20030218
  2. PREDNISONE [Concomitant]

REACTIONS (8)
  - BONE MARROW DISORDER [None]
  - ECZEMA [None]
  - LYMPHADENOPATHY [None]
  - LYMPHOCYTOSIS [None]
  - PHOTODERMATOSIS [None]
  - SPLENOMEGALY [None]
  - T-CELL LYMPHOMA STAGE IV [None]
  - WEIGHT DECREASED [None]
